FAERS Safety Report 4720891-4 (Version None)
Quarter: 2005Q3

REPORT INFORMATION
  Report Type: 
  Country: None (occurrence: None)
  Receive Date: 20050720
  Receipt Date: 20050705
  Transmission Date: 20060218
  Serious: Yes (Other)
  Sender: FDA-Public Use
  Company Number: HQWYE875430JUN05

PATIENT
  Age: 68 Year
  Sex: Female

DRUGS (5)
  1. EFFEXOR XR [Suspect]
     Dosage: SEE IMAGE
     Route: 048
     Dates: start: 20050610, end: 20050601
  2. EFFEXOR XR [Suspect]
     Dosage: SEE IMAGE
     Route: 048
     Dates: start: 20050601, end: 20050702
  3. MORPHINE [Concomitant]
  4. NEXIUM [Concomitant]
  5. DIURETIC (DIURETIC) [Concomitant]

REACTIONS (4)
  - DRUG WITHDRAWAL SYNDROME [None]
  - RASH [None]
  - STOMATITIS [None]
  - SWELLING FACE [None]
